FAERS Safety Report 7411408-4 (Version None)
Quarter: 2011Q2

REPORT INFORMATION
  Report Type: 
  Country: None (occurrence: None)
  Receive Date: 20110413
  Receipt Date: 20100726
  Transmission Date: 20111010
  Serious: Yes (Other)
  Sender: FDA-Public Use
  Company Number: US-BRISTOL-MYERS SQUIBB COMPANY-15210362

PATIENT
  Age: 36 Year
  Sex: Female

DRUGS (5)
  1. BENADRYL [Concomitant]
     Indication: PREMEDICATION
  2. METOCLOPRAMIDE [Concomitant]
     Indication: PREMEDICATION
  3. RADIATION THERAPY [Suspect]
  4. ERBITUX [Suspect]
     Dosage: 1DF=6 DOSES
  5. DEXAMETHASONE [Concomitant]
     Indication: PREMEDICATION

REACTIONS (3)
  - STOMATITIS [None]
  - OESOPHAGITIS [None]
  - MUCOSAL INFLAMMATION [None]
